FAERS Safety Report 16171847 (Version 8)
Quarter: 2021Q1

REPORT INFORMATION
  Report Type: Spontaneous
  Country: US (occurrence: US)
  Receive Date: 20190408
  Receipt Date: 20210129
  Transmission Date: 20210419
  Serious: Yes (Hospitalization)
  Sender: FDA-Public Use
  Company Number: US-TEVA-2019-US-1033457

PATIENT
  Age: 54 Year
  Sex: Male

DRUGS (1)
  1. WARFARIN SODIUM TABLETS, USP TEVA [Suspect]
     Active Substance: WARFARIN SODIUM
     Indication: HEART VALVE INCOMPETENCE
     Route: 048
     Dates: start: 20170503

REACTIONS (13)
  - Feeling abnormal [Recovered/Resolved]
  - International normalised ratio increased [Recovered/Resolved]
  - Pain [Recovered/Resolved]
  - Haematoma [Not Recovered/Not Resolved]
  - Headache [Recovered/Resolved]
  - Myocardial infarction [Unknown]
  - Poor peripheral circulation [Recovered/Resolved]
  - Neck pain [Not Recovered/Not Resolved]
  - Vasodilatation [Recovered/Resolved]
  - Blood urine present [Recovered/Resolved]
  - Toxicity to various agents [Recovered/Resolved]
  - Renal pain [Not Recovered/Not Resolved]
  - Abdominal pain upper [Recovered/Resolved]

NARRATIVE: CASE EVENT DATE: 20170503
